APPROVED DRUG PRODUCT: XALATAN
Active Ingredient: LATANOPROST
Strength: 0.005%
Dosage Form/Route: SOLUTION/DROPS;OPHTHALMIC
Application: N020597 | Product #001 | TE Code: AT
Applicant: UPJOHN US 2 LLC
Approved: Jun 5, 1996 | RLD: Yes | RS: Yes | Type: RX